FAERS Safety Report 10066556 (Version 1)
Quarter: 2014Q2

REPORT INFORMATION
  Report Type: Spontaneous
  Country: US (occurrence: US)
  Receive Date: 20140408
  Receipt Date: 20140408
  Transmission Date: 20141212
  Serious: Yes (Other)
  Sender: FDA-Public Use
  Company Number: US-BAXTER-2014BAX017162

PATIENT
  Age: 35 Year
  Sex: Female

DRUGS (3)
  1. GAMMAGARD LIQUID [Suspect]
     Indication: EPILEPSY
     Route: 065
  2. LEVETIRACETAM [Suspect]
     Indication: EPILEPSY
     Route: 065
  3. PHENOBARBITAL [Suspect]
     Indication: EPILEPSY
     Route: 065

REACTIONS (2)
  - Therapeutic response decreased [Unknown]
  - Embolism [Unknown]
